FAERS Safety Report 8125026-6 (Version None)
Quarter: 2012Q1

REPORT INFORMATION
  Report Type: 
  Country: None (occurrence: None)
  Receive Date: 20120209
  Receipt Date: 20120130
  Transmission Date: 20120608
  Serious: Yes (Other)
  Sender: FDA-Public Use
  Company Number: US-ROCHE-1038263

PATIENT
  Sex: Female
  Weight: 73.548 kg

DRUGS (8)
  1. BENADRYL [Concomitant]
  2. MACROBID [Concomitant]
  3. PAXIL [Concomitant]
  4. XELODA [Suspect]
     Dosage: AT PM
     Route: 048
     Dates: start: 20120124
  5. DILAUDID [Concomitant]
  6. XELODA [Suspect]
     Indication: COLORECTAL CANCER METASTATIC
     Dosage: AT AM
     Route: 048
     Dates: start: 20120119, end: 20120123
  7. MOTRIN [Concomitant]
  8. AVASTIN [Suspect]
     Indication: PRODUCT USED FOR UNKNOWN INDICATION

REACTIONS (3)
  - VOMITING [None]
  - FISTULA [None]
  - NAUSEA [None]
